FAERS Safety Report 7375767-3 (Version None)
Quarter: 2011Q1

REPORT INFORMATION
  Report Type: 
  Country: None (occurrence: None)
  Receive Date: 20110315
  Receipt Date: 20101105
  Transmission Date: 20110831
  Serious: Yes (Other)
  Sender: FDA-Public Use
  Company Number: 1419937-2010-00087

PATIENT
  Sex: Female

DRUGS (1)
  1. LANOLIN TENDERCARE (PRELAN BG) [Suspect]
     Indication: NIPPLE PAIN
     Dosage: AS NEEDED
     Dates: start: 20101005, end: 20101105

REACTIONS (1)
  - DERMATITIS CONTACT [None]
